FAERS Safety Report 19778950 (Version 12)
Quarter: 2023Q4

REPORT INFORMATION
  Report Type: Report from Study
  Country: DE (occurrence: DE)
  Receive Date: 20210902
  Receipt Date: 20231208
  Transmission Date: 20240110
  Serious: Yes (Other)
  Sender: FDA-Public Use
  Company Number: DE-002147023-PHHY2019DE167848

PATIENT
  Sex: Female
  Weight: 78 kg

DRUGS (9)
  1. LETROZOLE [Suspect]
     Active Substance: LETROZOLE
     Indication: Breast cancer metastatic
     Dosage: 2.5 MG, QD (LAST ADMINISTERED ON 30 JAN 2023)
     Route: 048
     Dates: start: 20190308, end: 20230130
  2. KISQALI [Suspect]
     Active Substance: RIBOCICLIB
     Indication: Breast cancer metastatic
     Dosage: 600MG,QD,(21 DAYS INTAKE, 7 DAYS PAUSE)
     Route: 048
     Dates: start: 20190308, end: 20190401
  3. KISQALI [Suspect]
     Active Substance: RIBOCICLIB
     Dosage: 400MG,QD,(21 DAYS INTAKE, 7 DAYS PAUSE)
     Route: 048
     Dates: start: 20190430, end: 20220808
  4. KISQALI [Suspect]
     Active Substance: RIBOCICLIB
     Dosage: 400MG,QD,(21 DAYS INTAKE, 7 DAYS PAUSE)
     Route: 048
     Dates: start: 20220803
  5. KISQALI [Suspect]
     Active Substance: RIBOCICLIB
     Dosage: 400MG,QD,(21 DAYS INTAKE, 7 DAYS PAUSE)
     Route: 048
     Dates: start: 20220823, end: 20220912
  6. KISQALI [Suspect]
     Active Substance: RIBOCICLIB
     Dosage: 400MG,QD,(21 DAYS INTAKE, 7 DAYS PAUSE)
     Route: 048
     Dates: start: 20220927, end: 20221017
  7. KISQALI [Suspect]
     Active Substance: RIBOCICLIB
     Dosage: 400MG,QD,(21 DAYS INTAKE, 7 DAYS PAUSE)
     Route: 048
     Dates: start: 20221101, end: 20221121
  8. KISQALI [Suspect]
     Active Substance: RIBOCICLIB
     Dosage: 400MG,QD,(21 DAYS INTAKE, 7 DAYS PAUSE)
     Route: 048
     Dates: start: 20221206, end: 20221226
  9. KISQALI [Suspect]
     Active Substance: RIBOCICLIB
     Dosage: 400MG,QD,(21 DAYS INTAKE, 7 DAYS PAUSE)
     Route: 048
     Dates: start: 20230110, end: 20230130

REACTIONS (4)
  - Anaemia [Not Recovered/Not Resolved]
  - Leukopenia [Recovered/Resolved]
  - Upper respiratory tract infection [Recovered/Resolved]
  - Arthralgia [Recovered/Resolved]

NARRATIVE: CASE EVENT DATE: 20190402
